FAERS Safety Report 17933457 (Version 1)
Quarter: 2020Q2

REPORT INFORMATION
  Report Type: Spontaneous
  Country: US (occurrence: US)
  Receive Date: 20200622
  Receipt Date: 20200622
  Transmission Date: 20200714
  Serious: Yes (Hospitalization)
  Sender: FDA-Public Use
  Company Number: None

PATIENT
  Age: 73 Year
  Sex: Male
  Weight: 71 kg

DRUGS (1)
  1. ROPINIROLE (ROPINIROLE HCL 1MG TAB) [Suspect]
     Active Substance: ROPINIROLE HYDROCHLORIDE
     Indication: RESTLESS LEGS SYNDROME
     Route: 048
     Dates: start: 20200409, end: 20200602

REACTIONS (4)
  - Obsessive-compulsive disorder [None]
  - Irritability [None]
  - Mania [None]
  - Agitation [None]

NARRATIVE: CASE EVENT DATE: 20200602
